FAERS Safety Report 6263747-0 (Version None)
Quarter: 2009Q3

REPORT INFORMATION
  Report Type: 
  Country: None (occurrence: None)
  Receive Date: 20090710
  Receipt Date: 20090630
  Transmission Date: 20100115
  Serious: Yes (Hospitalization, Other)
  Sender: FDA-Public Use
  Company Number: PHHY2008BR12705

PATIENT
  Age: 71 Year
  Sex: Female
  Weight: 65 kg

DRUGS (10)
  1. DIOVAN HCT [Suspect]
     Indication: HYPERTENSION
     Dosage: 1 DF, BID
     Route: 048
     Dates: start: 20080627
  2. SYNTHROID [Concomitant]
     Indication: THYROID DISORDER
     Dosage: UNK
     Route: 048
  3. ANCORON [Concomitant]
     Indication: CARDIAC DISORDER
     Dosage: 200 MG, QD
     Route: 048
  4. ATENOLOL [Concomitant]
     Indication: BLOOD PRESSURE
     Dosage: 50 MG, BID
     Route: 048
  5. PANTOPRAZOLE SODIUM [Concomitant]
     Indication: GASTRIC DISORDER
     Dosage: UNK
     Route: 048
  6. RIVOTRIL [Concomitant]
     Indication: DEPRESSION
     Dosage: 3 DROPS
     Route: 048
     Dates: start: 20080627
  7. CALCIUM CITRATE [Concomitant]
     Dosage: 400 MG, UNK
  8. ASPARTATE MAGNESIUM [Concomitant]
     Dosage: 250 MG, UNK
  9. AMLODIPINE BESYLATE [Concomitant]
  10. BORON CHELATE [Concomitant]
     Dosage: 1 MG/DAY
     Route: 048

REACTIONS (3)
  - BLOOD PRESSURE DIASTOLIC DECREASED [None]
  - BLOOD PRESSURE INCREASED [None]
  - MITRAL VALVE REPAIR [None]
